FAERS Safety Report 17360540 (Version 1)
Quarter: 2020Q1

REPORT INFORMATION
  Report Type: Spontaneous
  Country: US (occurrence: US)
  Receive Date: 20200117
  Receipt Date: 20200117
  Transmission Date: 20200409
  Serious: No
  Sender: FDA-Public Use
  Company Number: None

PATIENT
  Sex: Male

DRUGS (1)
  1. REMICADE [Suspect]
     Active Substance: INFLIXIMAB
     Indication: PSORIASIS
     Dosage: ?          OTHER FREQUENCY:EVERY 6 WEEKS;OTHER ROUTE:IV?
     Route: 042
     Dates: start: 20160415

REACTIONS (2)
  - Drug ineffective [None]
  - Intentional product use issue [None]
